FAERS Safety Report 16162982 (Version 1)
Quarter: 2019Q2

REPORT INFORMATION
  Report Type: Spontaneous
  Country: ES (occurrence: ES)
  Receive Date: 20190405
  Receipt Date: 20190405
  Transmission Date: 20190711
  Serious: Yes (Other)
  Sender: FDA-Public Use
  Company Number: ES-SA-2019SA093143

PATIENT
  Age: 2 Year
  Sex: Male

DRUGS (1)
  1. CEREZYME [Suspect]
     Active Substance: IMIGLUCERASE
     Indication: GAUCHER^S DISEASE TYPE I
     Route: 041

REACTIONS (4)
  - Myoclonus [Unknown]
  - Urinary incontinence [Unknown]
  - Petit mal epilepsy [Unknown]
  - Condition aggravated [Unknown]
